FAERS Safety Report 18219434 (Version 2)
Quarter: 2020Q4

REPORT INFORMATION
  Report Type: Spontaneous
  Country: US (occurrence: US)
  Receive Date: 20200901
  Receipt Date: 20201118
  Transmission Date: 20210113
  Serious: No
  Sender: FDA-Public Use
  Company Number: US-GILEAD-2020-0492701

PATIENT
  Sex: Female

DRUGS (5)
  1. NICORETTE [NICOTINE] [Concomitant]
  2. KLONOPIN [Concomitant]
     Active Substance: CLONAZEPAM
  3. LEXAPRO [Concomitant]
     Active Substance: ESCITALOPRAM OXALATE
  4. WELLBUTRIN [Concomitant]
     Active Substance: BUPROPION HYDROCHLORIDE
  5. SOFOSBUVIR;VELPATASVIR [Suspect]
     Active Substance: SOFOSBUVIR\VELPATASVIR
     Indication: CHRONIC HEPATITIS C
     Dosage: 1 DOSAGE FORM (400/100 MG), QD
     Route: 048
     Dates: start: 20200805, end: 20201023

REACTIONS (3)
  - Memory impairment [Unknown]
  - Product dose omission issue [Recovered/Resolved]
  - Dizziness [Recovered/Resolved]
